FAERS Safety Report 8582217-8 (Version None)
Quarter: 2012Q3

REPORT INFORMATION
  Report Type: 
  Country: None (occurrence: None)
  Receive Date: 20120809
  Receipt Date: 20120731
  Transmission Date: 20120928
  Serious: Yes (Hospitalization, Other)
  Sender: FDA-Public Use
  Company Number: US-ASTRAZENECA-2012SE54383

PATIENT
  Age: 66 Year
  Sex: Male
  Weight: 32.7 kg

DRUGS (16)
  1. NEXIUM [Suspect]
     Route: 048
     Dates: start: 20110101, end: 20110201
  2. NEXIUM [Suspect]
     Route: 048
     Dates: start: 20120301, end: 20120727
  3. NEXIUM [Suspect]
     Route: 048
     Dates: start: 20120301, end: 20120727
  4. NEXIUM [Suspect]
     Route: 048
  5. NEXIUM [Suspect]
     Route: 048
     Dates: start: 20110101, end: 20110201
  6. NEXIUM [Suspect]
     Route: 048
     Dates: start: 20120301, end: 20120727
  7. HYDROCHLOROTHIAZIDE [Concomitant]
     Indication: BLOOD PRESSURE ABNORMAL
     Route: 048
     Dates: start: 20050101
  8. NEXIUM [Suspect]
     Indication: GASTRIC OPERATION
     Route: 048
     Dates: start: 20100101, end: 20110101
  9. NEXIUM [Suspect]
     Route: 048
  10. LOVAZA [Concomitant]
     Indication: BLOOD CHOLESTEROL ABNORMAL
     Route: 048
     Dates: start: 20110101
  11. METOPROLOL TARTRATE [Concomitant]
     Indication: BLOOD PRESSURE ABNORMAL
     Route: 048
     Dates: start: 20090101
  12. NEXIUM [Suspect]
     Indication: GASTRIC HAEMORRHAGE
     Route: 048
     Dates: start: 20100101, end: 20110101
  13. PLAVIX [Concomitant]
     Indication: ANTICOAGULANT THERAPY
     Route: 048
     Dates: start: 20090101
  14. CILOSTAZOL [Concomitant]
     Indication: ANTICOAGULANT THERAPY
     Route: 048
     Dates: start: 20090101
  15. NEXIUM [Suspect]
     Route: 048
     Dates: start: 20120301, end: 20120727
  16. NAMENDA [Concomitant]
     Indication: NERVOUS SYSTEM DISORDER
     Route: 048
     Dates: start: 20111201

REACTIONS (10)
  - INTENTIONAL DRUG MISUSE [None]
  - OFF LABEL USE [None]
  - DIABETES MELLITUS [None]
  - MEMORY IMPAIRMENT [None]
  - CRYOGLOBULINAEMIA [None]
  - GASTRIC HAEMORRHAGE [None]
  - BODY HEIGHT DECREASED [None]
  - GASTROINTESTINAL INJURY [None]
  - HAEMOGLOBIN DECREASED [None]
  - LIMB INJURY [None]
